FAERS Safety Report 4291773-X (Version None)
Quarter: 2004Q1

REPORT INFORMATION
  Report Type: 
  Country: None (occurrence: None)
  Receive Date: 20040211
  Receipt Date: 20030314
  Transmission Date: 20041129
  Serious: No
  Sender: FDA-Public Use
  Company Number: US-GLAXOSMITHKLINE-A0400601A

PATIENT
  Sex: Male

DRUGS (2)
  1. IMITREX [Suspect]
     Indication: MIGRAINE
     Dosage: 1INJ UNKNOWN
     Route: 058
     Dates: start: 20030314
  2. FIORICET [Concomitant]

REACTIONS (2)
  - DYSPHAGIA [None]
  - FEELING HOT [None]
